FAERS Safety Report 8234005-X (Version None)
Quarter: 2012Q1

REPORT INFORMATION
  Report Type: 
  Country: None (occurrence: None)
  Receive Date: 20120326
  Receipt Date: 20110923
  Transmission Date: 20120608
  Serious: No
  Sender: FDA-Public Use
  Company Number: US-BRISTOL-MYERS SQUIBB COMPANY-16091951

PATIENT

DRUGS (3)
  1. BICNU [Suspect]
  2. ETOPOPHOS PRESERVATIVE FREE [Suspect]
  3. ERBITUX [Suspect]

REACTIONS (1)
  - INCORRECT STORAGE OF DRUG [None]
